FAERS Safety Report 9678690 (Version 4)
Quarter: 2014Q1

REPORT INFORMATION
  Report Type: Spontaneous
  Country: US (occurrence: US)
  Receive Date: 20131108
  Receipt Date: 20140128
  Transmission Date: 20141002
  Serious: No
  Sender: FDA-Public Use
  Company Number: US-PFIZER INC-2013319105

PATIENT
  Age: 54 Year
  Sex: Female
  Weight: 76.19 kg

DRUGS (3)
  1. XELJANZ [Suspect]
     Indication: RHEUMATOID ARTHRITIS
     Dosage: 5 MG, 2X/DAY
     Route: 048
     Dates: start: 20130422
  2. XELJANZ [Suspect]
     Dosage: 5 MG, 2X/DAY
     Route: 048
     Dates: start: 201304
  3. AMLODIPINE [Concomitant]
     Indication: BLOOD PRESSURE ABNORMAL
     Dosage: 5 MG, 1X/DAY

REACTIONS (8)
  - Blood pressure increased [Recovered/Resolved]
  - Acne [Unknown]
  - Erythema [Unknown]
  - Eye swelling [Unknown]
  - Paraesthesia [Unknown]
  - Panic reaction [Unknown]
  - Ocular hyperaemia [Unknown]
  - Rash [Unknown]
